FAERS Safety Report 9433072 (Version 3)
Quarter: 2013Q3

REPORT INFORMATION
  Report Type: Report from Study
  Country: US (occurrence: US)
  Receive Date: 20130731
  Receipt Date: 20130917
  Transmission Date: 20140515
  Serious: No
  Sender: FDA-Public Use
  Company Number: US-VERTEX PHARMACEUTICALS INC-2013-008421

PATIENT
  Age: 51 Year
  Sex: Female
  Weight: 78 kg

DRUGS (15)
  1. VX-950 (TELAPREVIR) [Suspect]
     Indication: HEPATITIS C
     Dosage: 750 MG, TID
     Route: 048
     Dates: start: 20130209, end: 20130503
  2. RIBAVIRIN [Suspect]
     Indication: HEPATITIS C
     Dosage: 600 MG, QD
     Dates: start: 20130209
  3. RIBAVIRIN [Suspect]
     Dosage: 200 MG, QD
     Dates: end: 20130730
  4. PEGINTRON [Suspect]
     Indication: HEPATITIS C
     Dosage: 150 ?G, QW
     Dates: start: 20130209, end: 20130730
  5. ASPIRIN [Concomitant]
     Dosage: 81 MG, QD
     Route: 048
  6. BISOPROLOL FUMARATE [Concomitant]
     Dosage: 5 MG, QD
     Route: 048
  7. BENADRYL [Concomitant]
     Indication: PRURITUS
     Dosage: 1-2 DF, PRN
     Route: 048
  8. PROCTOCORT [Concomitant]
     Dosage: 30 MG, AS DIRECTED
     Route: 054
  9. ATARAX [Concomitant]
     Indication: PRURITUS
     Dosage: 25 MG, PRN
  10. HUMALOG HUMAJECT [Concomitant]
     Dosage: 100 UNITS/ ML (75-25)
     Route: 058
  11. HYZAAR [Concomitant]
     Dosage: 1 DF, QD
     Route: 048
  12. GLUCOPHAGE [Concomitant]
     Dosage: 2000 MG, BID
     Route: 048
  13. OMEGA-3 FATTY ACIDS [Concomitant]
     Dosage: 1000 MG, QD
     Route: 048
  14. MIRALAX [Concomitant]
     Dosage: 17 G, QD
     Route: 048
  15. CRESTOR [Concomitant]
     Dosage: 5 MG, QD
     Route: 048

REACTIONS (1)
  - Drug ineffective [Not Recovered/Not Resolved]
